FAERS Safety Report 4319263-6 (Version None)
Quarter: 2004Q1

REPORT INFORMATION
  Report Type: 
  Country: None (occurrence: None)
  Receive Date: 20040316
  Receipt Date: 20040302
  Transmission Date: 20041129
  Serious: Yes (Other)
  Sender: FDA-Public Use
  Company Number: JP-SHR-04-021872

PATIENT
  Age: 13 Year
  Sex: Female

DRUGS (5)
  1. FLUDARA [Suspect]
     Indication: BONE MARROW TRANSPLANT
  2. CYCLOPHOSPHAMIDE [Concomitant]
  3. ATG (ANTITHYMOCYTE IMMUNOGLOBULIN) [Concomitant]
  4. METHOTREXATE SODIUM [Concomitant]
  5. FK 506 (TACROLIMUS) [Concomitant]

REACTIONS (3)
  - CARDIAC FAILURE [None]
  - CARDIAC TAMPONADE [None]
  - GRAFT VERSUS HOST DISEASE [None]
